FAERS Safety Report 7597865-1 (Version None)
Quarter: 2011Q3

REPORT INFORMATION
  Report Type: 
  Country: None (occurrence: None)
  Receive Date: 20110708
  Receipt Date: 20110630
  Transmission Date: 20111222
  Serious: Yes (Hospitalization)
  Sender: FDA-Public Use
  Company Number: JP-MERCK-1102USA00756

PATIENT
  Age: 43 Year
  Sex: Female

DRUGS (6)
  1. EMEND [Suspect]
     Indication: PROPHYLAXIS OF NAUSEA AND VOMITING
     Route: 048
     Dates: start: 20101201, end: 20101201
  2. GRANISETRON [Concomitant]
     Route: 065
     Dates: start: 20101201, end: 20101201
  3. DEXAMETHASONE [Concomitant]
     Route: 065
     Dates: start: 20101201, end: 20101203
  4. CARBOPLATIN [Suspect]
     Indication: OVARIAN CANCER
     Route: 042
     Dates: start: 20101201, end: 20101201
  5. TAXOL [Suspect]
     Indication: OVARIAN CANCER
     Route: 042
     Dates: start: 20101201, end: 20101201
  6. EMEND [Suspect]
     Route: 048
     Dates: start: 20101202, end: 20101203

REACTIONS (1)
  - ILEUS [None]
